FAERS Safety Report 9886018 (Version 3)
Quarter: 2014Q3

REPORT INFORMATION
  Report Type: Report from Study
  Country: DE (occurrence: DE)
  Receive Date: 20140210
  Receipt Date: 20140702
  Transmission Date: 20150326
  Serious: Yes (Death)
  Sender: FDA-Public Use
  Company Number: PHHY2013DE114320

PATIENT
  Sex: Female
  Weight: 53 kg

DRUGS (19)
  1. ACTRAPID//INSULIN HUMAN [Concomitant]
     Dosage: 14 IU/ML, UNK
     Dates: start: 20121210
  2. AMLODIPIN [Concomitant]
     Active Substance: AMLODIPINE BESYLATE
     Dates: start: 20121210
  3. ASPIRIN. [Concomitant]
     Active Substance: ASPIRIN
     Dates: start: 20121026
  4. LANTUS [Concomitant]
     Active Substance: INSULIN GLARGINE
     Dosage: 10 U/ML, UNK
     Dates: start: 20121210
  5. NEBIVOLOL [Concomitant]
     Active Substance: NEBIVOLOL
     Dates: start: 20121210
  6. PANTOPRAZOLE [Concomitant]
     Active Substance: PANTOPRAZOLE SODIUM
     Dosage: 40 MG, UNK
     Dates: start: 20120709
  7. NOVAMINSULFON [Concomitant]
     Active Substance: METAMIZOLE
     Dosage: 1 DF, BID
     Dates: start: 20131121
  8. GLYCOPYRRONIUM BROMIDE [Suspect]
     Active Substance: GLYCOPYRRONIUM
     Indication: CHRONIC OBSTRUCTIVE PULMONARY DISEASE
     Dosage: 44 UG, QD
     Route: 055
     Dates: start: 20130620, end: 201309
  9. TORASEMID [Concomitant]
     Active Substance: TORSEMIDE
     Indication: OEDEMA PERIPHERAL
     Dosage: 1 DF, BID
     Dates: start: 20130724
  10. PALEXIA [Concomitant]
     Active Substance: TAPENTADOL HYDROCHLORIDE
     Dates: start: 20131125
  11. GLYCOPYRRONIUM BROMIDE [Suspect]
     Active Substance: GLYCOPYRRONIUM
     Dosage: 44 UG, QD
     Route: 055
     Dates: start: 20130924, end: 201311
  12. VALSARTAN. [Concomitant]
     Active Substance: VALSARTAN
     Dates: start: 20120321
  13. CLONID-OPHTAL [Concomitant]
  14. BERODUAL N [Concomitant]
     Active Substance: FENOTEROL HYDROBROMIDE\IPRATROPIUM BROMIDE
     Route: 055
     Dates: start: 20120625
  15. FORMOTEROL CT [Concomitant]
     Dosage: 12 UG, BID
     Route: 055
     Dates: start: 20101105
  16. PREDNI H [Concomitant]
     Active Substance: PREDNISOLONE
     Dates: start: 20120706
  17. NAC 500 [Concomitant]
     Dates: start: 20130207
  18. ULTIBRO BREEZHALER [Suspect]
     Active Substance: GLYCOPYRRONIUM\INDACATEROL
     Indication: CHRONIC OBSTRUCTIVE PULMONARY DISEASE
     Dosage: 1 DF, QD
     Route: 055
     Dates: start: 20131118
  19. ZOLPIDEM [Concomitant]
     Active Substance: ZOLPIDEM\ZOLPIDEM TARTRATE
     Dates: start: 20130225

REACTIONS (5)
  - Sputum discoloured [Fatal]
  - Dyspnoea [Fatal]
  - Infective exacerbation of chronic obstructive airways disease [Fatal]
  - Osteoporosis [Not Recovered/Not Resolved]
  - General physical health deterioration [Fatal]

NARRATIVE: CASE EVENT DATE: 20130909
